FAERS Safety Report 7997525-9 (Version None)
Quarter: 2011Q4

REPORT INFORMATION
  Report Type: 
  Country: None (occurrence: None)
  Receive Date: 20111221
  Receipt Date: 20111215
  Transmission Date: 20120403
  Serious: No
  Sender: FDA-Public Use
  Company Number: US-B.I. PHARMACEUTICALS,INC./RIDGEFIELD-2011-BP-28267BP

PATIENT
  Sex: Female

DRUGS (2)
  1. METHADONE HCL [Suspect]
  2. MELOXICAM [Suspect]

REACTIONS (3)
  - FALL [None]
  - GAIT DISTURBANCE [None]
  - DRUG INEFFECTIVE [None]
